FAERS Safety Report 7256963-2 (Version None)
Quarter: 2011Q1

REPORT INFORMATION
  Report Type: 
  Country: None (occurrence: None)
  Receive Date: 20110129
  Receipt Date: 20100713
  Transmission Date: 20110831
  Serious: Yes (Hospitalization, Other)
  Sender: FDA-Public Use
  Company Number: US-ABBOTT-10P-163-0657157-00

PATIENT
  Sex: Female
  Weight: 79.45 kg

DRUGS (10)
  1. FORTEO [Concomitant]
     Indication: OSTEOPENIA
     Dates: start: 20090701
  2. DAYPRO [Concomitant]
     Indication: RHEUMATOID ARTHRITIS
  3. METHOTREXATE [Concomitant]
     Indication: RHEUMATOID ARTHRITIS
  4. MULTIPLE VITAMINS [Concomitant]
     Indication: VITAMIN SUPPLEMENTATION
  5. IRON [Concomitant]
     Indication: MINERAL SUPPLEMENTATION
  6. FOLIC ACID [Concomitant]
     Indication: RHEUMATOID ARTHRITIS
  7. PREDNISONE [Suspect]
     Indication: RHEUMATOID ARTHRITIS
  8. VITAMIN D [Concomitant]
     Indication: VITAMIN SUPPLEMENTATION
  9. HUMIRA [Suspect]
     Indication: RHEUMATOID ARTHRITIS
     Dates: start: 20080301
  10. CALCIUM [Concomitant]
     Indication: OSTEOPENIA

REACTIONS (4)
  - LOWER LIMB FRACTURE [None]
  - NEPHROLITHIASIS [None]
  - BONE DISORDER [None]
  - HIP FRACTURE [None]
